FAERS Safety Report 5586296-1 (Version None)
Quarter: 2008Q1

REPORT INFORMATION
  Report Type: 
  Country: None (occurrence: None)
  Receive Date: 20080107
  Receipt Date: 20080107
  Transmission Date: 20080703
  Serious: No
  Sender: FDA-Public Use
  Company Number: None

PATIENT
  Age: 53 Year
  Sex: Female
  Weight: 26.3086 kg

DRUGS (1)
  1. AMBIEN CR [Suspect]
     Indication: INSOMNIA
     Dosage: 12.5MG   AT BED TIME  PO
     Route: 048

REACTIONS (3)
  - AMNESIA [None]
  - SLEEP-RELATED EATING DISORDER [None]
  - SOMNAMBULISM [None]
